FAERS Safety Report 17888789 (Version 1)
Quarter: 2020Q2

REPORT INFORMATION
  Report Type: Spontaneous
  Country: US (occurrence: US)
  Receive Date: 20200612
  Receipt Date: 20200612
  Transmission Date: 20200714
  Serious: Yes (Hospitalization, Other)
  Sender: FDA-Public Use
  Company Number: None

PATIENT
  Sex: Male
  Weight: 74.4 kg

DRUGS (5)
  1. HYDROCORTISONE. [Concomitant]
     Active Substance: HYDROCORTISONE
     Dates: start: 20200527, end: 20200527
  2. TYLENOL [Concomitant]
     Active Substance: ACETAMINOPHEN
     Dates: start: 20200527, end: 20200527
  3. BENADRYL [Concomitant]
     Active Substance: DIPHENHYDRAMINE HYDROCHLORIDE
     Dates: start: 20200527, end: 20200527
  4. ONCASPAR [Suspect]
     Active Substance: PEGASPARGASE
     Indication: LEUKAEMIA
     Route: 042
     Dates: start: 20200330, end: 20200527
  5. FAMOTIDINE. [Concomitant]
     Active Substance: FAMOTIDINE
     Dates: start: 20200527, end: 20200527

REACTIONS (6)
  - Abdominal pain [None]
  - Chest discomfort [None]
  - Feeling hot [None]
  - Nausea [None]
  - Blood pressure decreased [None]
  - Flushing [None]
